FAERS Safety Report 5392112-3 (Version None)
Quarter: 2007Q3

REPORT INFORMATION
  Report Type: 
  Country: None (occurrence: None)
  Receive Date: 20070717
  Receipt Date: 20070717
  Transmission Date: 20080115
  Serious: No
  Sender: FDA-Public Use
  Company Number: None

PATIENT
  Age: 49 Year
  Sex: Female
  Weight: 58.9676 kg

DRUGS (5)
  1. BUDEPRION XL 300MG TEVA [Suspect]
     Indication: DEPRESSION
     Dosage: 300MG QD PO 2+ MONTHS
     Route: 048
     Dates: start: 20061201, end: 20070211
  2. IMITREX [Concomitant]
  3. ATENOLOL [Concomitant]
  4. FLONASE [Concomitant]
  5. SPRINTEC [Concomitant]

REACTIONS (4)
  - CONSTIPATION [None]
  - INSOMNIA [None]
  - PANIC ATTACK [None]
  - PHARMACEUTICAL PRODUCT COMPLAINT [None]
